FAERS Safety Report 4404614-4 (Version None)
Quarter: 2004Q3

REPORT INFORMATION
  Report Type: 
  Country: None (occurrence: None)
  Receive Date: 20040721
  Receipt Date: 20040721
  Transmission Date: 20050211
  Serious: Yes (Other)
  Sender: FDA-Public Use
  Company Number: None

PATIENT
  Age: 38 Year
  Sex: Male

DRUGS (2)
  1. STRATTERA [Suspect]
     Indication: ATTENTION DEFICIT/HYPERACTIVITY DISORDER
     Dosage: 25 MG PO
     Route: 048
     Dates: start: 20040101, end: 20040301
  2. PROPECIA [Concomitant]

REACTIONS (2)
  - PENILE DISCHARGE [None]
  - RHINORRHOEA [None]
